FAERS Safety Report 6293595-7 (Version None)
Quarter: 2009Q3

REPORT INFORMATION
  Report Type: 
  Country: None (occurrence: None)
  Receive Date: 20090729
  Receipt Date: 20090713
  Transmission Date: 20100115
  Serious: Yes (Hospitalization)
  Sender: FDA-Public Use
  Company Number: DSA_34048_2009

PATIENT
  Sex: Male

DRUGS (8)
  1. DILTIAZEM [Suspect]
     Indication: DRUG USE FOR UNKNOWN INDICATION
     Dosage: (60 MG BID ORAL)
     Route: 048
     Dates: start: 20090519, end: 20090603
  2. CIPROXIN /00697201/ (CIPROXIN - CIPROFLOXACIN) (NOT SPECIFIED) [Suspect]
     Indication: DRUG USE FOR UNKNOWN INDICATION
     Dosage: (500 MG BID ORAL)
     Route: 048
     Dates: start: 20090526, end: 20090602
  3. SULFAMETHOXAZOLE AND TRIMETHOPRIM (BACTRIM FORTE - SULFAMETHOXAZOLE/TR [Suspect]
     Indication: DRUG USE FOR UNKNOWN INDICATION
     Dosage: (800 MG BID ORAL)
     Route: 048
     Dates: start: 20090520, end: 20090522
  4. PASPERTIN /00041902/ (PASPERTIN - METOCLOPRAMIDE HYDROCHLORIDE) (NOT S [Suspect]
     Indication: DRUG USE FOR UNKNOWN INDICATION
     Dosage: (10 MG TID ORAL)
     Route: 048
     Dates: start: 20090519, end: 20090525
  5. ASPIRIN [Concomitant]
  6. PRADIF [Concomitant]
  7. NULYTELY [Concomitant]
  8. METOPROLOL TARTRATE [Concomitant]

REACTIONS (9)
  - CONJUNCTIVAL HYPERAEMIA [None]
  - ERYTHEMA [None]
  - EYE DISORDER [None]
  - NASAL MUCOSAL DISORDER [None]
  - NECROSIS [None]
  - RASH MACULO-PAPULAR [None]
  - RASH PAPULAR [None]
  - SKIN FISSURES [None]
  - SKIN LESION [None]
